FAERS Safety Report 8698899 (Version 3)
Quarter: 2012Q4

REPORT INFORMATION
  Report Type: 
  Country: JP (occurrence: JP)
  Receive Date: 20120802
  Receipt Date: 20121227
  Transmission Date: 20130627
  Serious: Yes (Hospitalization)
  Sender: FDA-Public Use
  Company Number: JP-UCBSA-062772

PATIENT
  Age: 5 Year
  Sex: Male
  Weight: 16 kg

DRUGS (12)
  1. E KEPPRA [Suspect]
     Indication: MYOCLONIC EPILEPSY
     Dosage: 650 MG/DAY
     Route: 048
     Dates: start: 20110224, end: 20110309
  2. E KEPPRA [Suspect]
     Indication: EPILEPSY
     Dosage: 650 MG/DAY
     Route: 048
     Dates: start: 20110224, end: 20110309
  3. E KEPPRA [Suspect]
     Indication: MYOCLONIC EPILEPSY
     Dosage: DAILY DOSE: 500 MG/DAY
     Route: 048
     Dates: start: 20110210, end: 20110223
  4. E KEPPRA [Suspect]
     Indication: EPILEPSY
     Dosage: DAILY DOSE: 500 MG/DAY
     Route: 048
     Dates: start: 20110210, end: 20110223
  5. E KEPPRA [Suspect]
     Indication: MYOCLONIC EPILEPSY
     Route: 048
     Dates: start: 20110127, end: 20110209
  6. E KEPPRA [Suspect]
     Indication: EPILEPSY
     Route: 048
     Dates: start: 20110127, end: 20110209
  7. DEPAKENE [Suspect]
     Indication: CONVULSION
     Dosage: DAILY DOSE:498 MG
     Route: 048
     Dates: start: 201101
  8. MYSTAN [Suspect]
     Indication: CONVULSION
     Dosage: DAILY DOSE:10 MG
     Route: 048
     Dates: start: 201101
  9. TOPINA [Suspect]
     Indication: CONVULSION
     Dosage: DAILY DOSE:45 MG
     Route: 048
     Dates: start: 201101
  10. MAGNESIUM OXIDE [Concomitant]
     Indication: CONSTIPATION
     Dosage: DAILY DOSE: 0.66 G
     Route: 048
     Dates: start: 20110127
  11. GABALON [Concomitant]
     Indication: SPASTIC PARALYSIS
     Dosage: DAILY DOSE : 15 MG
     Route: 048
     Dates: start: 20110127
  12. DANTRIUM [Concomitant]
     Indication: SPASTIC PARALYSIS
     Dosage: DAILY DOSE: 15 MG
     Route: 048
     Dates: start: 20110127

REACTIONS (4)
  - Listless [Recovering/Resolving]
  - Vomiting [Recovered/Resolved]
  - Decreased appetite [Recovering/Resolving]
  - Weight decreased [Recovering/Resolving]
